FAERS Safety Report 9846633 (Version 3)
Quarter: 2014Q1

REPORT INFORMATION
  Report Type: Spontaneous
  Country: JP (occurrence: JP)
  Receive Date: 20140127
  Receipt Date: 20140218
  Transmission Date: 20141002
  Serious: Yes (Hospitalization)
  Sender: FDA-Public Use
  Company Number: JP-GLAXOSMITHKLINE-B0962846A

PATIENT
  Age: 56 Year
  Sex: Female

DRUGS (6)
  1. LAMICTAL [Suspect]
     Indication: BIPOLAR I DISORDER
     Dosage: 25MG PER DAY
     Route: 048
     Dates: start: 20131211, end: 20140116
  2. SEROQUEL [Concomitant]
     Dosage: 200MG PER DAY
     Route: 048
  3. LENDORMIN [Concomitant]
     Dosage: .25MG PER DAY
     Route: 048
  4. LUNESTA [Concomitant]
     Dosage: 3MG PER DAY
     Route: 048
  5. ETICALM [Concomitant]
     Dosage: .5MG THREE TIMES PER DAY
     Route: 048
  6. BESASTAR SR [Concomitant]
     Dosage: 200MG TWICE PER DAY
     Route: 048

REACTIONS (7)
  - Drug eruption [Recovering/Resolving]
  - Toxic skin eruption [Unknown]
  - Ear swelling [Unknown]
  - Rash [Unknown]
  - Rash generalised [Unknown]
  - Enanthema [Unknown]
  - Oral mucosa erosion [Unknown]
